FAERS Safety Report 8530801 (Version 3)
Quarter: 2013Q2

REPORT INFORMATION
  Report Type: Report from Study
  Country: FR (occurrence: FR)
  Receive Date: 20120425
  Receipt Date: 20130419
  Transmission Date: 20140414
  Serious: Yes (Hospitalization, Other)
  Sender: FDA-Public Use
  Company Number: PHHO2012FR006226

PATIENT
  Age: 69 Year
  Sex: Male
  Weight: 83 kg

DRUGS (14)
  1. BLINDED ENALAPRIL [Suspect]
     Indication: CARDIAC FAILURE CHRONIC
     Dosage: UNK
     Dates: start: 20120216
  2. BLINDED LCZ696 [Suspect]
     Indication: CARDIAC FAILURE CHRONIC
     Dosage: UNK
     Dates: start: 20120216
  3. BLINDED NO TREATMENT RECEIVED [Suspect]
     Indication: CARDIAC FAILURE CHRONIC
     Dosage: UNK
     Dates: start: 20120216
  4. BISOPROLOL [Suspect]
  5. BUMETANIDE [Suspect]
  6. CARDENSIEL [Concomitant]
     Indication: CARDIAC FAILURE CHRONIC
  7. BURINEX [Concomitant]
     Indication: CARDIAC FAILURE CHRONIC
  8. ALDACTONE [Concomitant]
     Indication: CARDIAC FAILURE CHRONIC
  9. DIGOXINE [Concomitant]
     Indication: CARDIAC FAILURE CHRONIC
  10. NITRODERM [Concomitant]
     Indication: CARDIAC FAILURE CHRONIC
  11. ASPEGIC [Concomitant]
     Indication: CARDIAC FAILURE CHRONIC
  12. PREVISCAN [Concomitant]
     Indication: CARDIAC FAILURE CHRONIC
  13. PRAVASTATINE [Concomitant]
     Indication: CARDIAC FAILURE CHRONIC
  14. ZYLORIC [Concomitant]
     Indication: GOUTY ARTHRITIS

REACTIONS (1)
  - Syncope [Recovered/Resolved]
